FAERS Safety Report 4706950-0 (Version None)
Quarter: 2005Q3

REPORT INFORMATION
  Report Type: 
  Country: None (occurrence: None)
  Receive Date: 20050706
  Receipt Date: 20050328
  Transmission Date: 20060218
  Serious: Yes (Other)
  Sender: FDA-Public Use
  Company Number: PHEH2005US03679

PATIENT
  Age: 64 Year
  Sex: Male

DRUGS (1)
  1. LAMISIL [Suspect]
     Indication: NAIL TINEA
     Dosage: 250 MG, QD
     Route: 048
     Dates: start: 19990920, end: 20000101

REACTIONS (1)
  - VITILIGO [None]
